FAERS Safety Report 19411844 (Version 1)
Quarter: 2021Q2

REPORT INFORMATION
  Report Type: Spontaneous
  Country: GB (occurrence: GB)
  Receive Date: 20210614
  Receipt Date: 20210614
  Transmission Date: 20210717
  Serious: Yes (Other)
  Sender: FDA-Public Use
  Company Number: GB-GLAXOSMITHKLINE-GB2021125978

PATIENT
  Age: 49 Year
  Sex: Female
  Weight: 101.6 kg

DRUGS (2)
  1. VALACYCLOVIR HYDROCHLORIDE. [Suspect]
     Active Substance: VALACYCLOVIR HYDROCHLORIDE
     Indication: ORAL HERPES
     Dosage: 500 MG, QD
     Route: 048
     Dates: start: 20201114, end: 20201123
  2. VALACYCLOVIR HYDROCHLORIDE. [Suspect]
     Active Substance: VALACYCLOVIR HYDROCHLORIDE
     Indication: ILL-DEFINED DISORDER
     Dosage: 125 MG
     Route: 065

REACTIONS (3)
  - Diarrhoea [Recovered/Resolved]
  - Proctalgia [Not Recovered/Not Resolved]
  - Anal fissure [Recovered/Resolved with Sequelae]

NARRATIVE: CASE EVENT DATE: 20201116
